FAERS Safety Report 12190747 (Version 1)
Quarter: 2016Q1

REPORT INFORMATION
  Report Type: Spontaneous
  Country: PL (occurrence: PL)
  Receive Date: 20160318
  Receipt Date: 20160318
  Transmission Date: 20160526
  Serious: Yes (Hospitalization)
  Sender: FDA-Public Use
  Company Number: PL-WATSON-2016-05949

PATIENT
  Age: 35 Year
  Sex: Male

DRUGS (4)
  1. CISPLATIN (UNKNOWN) [Suspect]
     Active Substance: CISPLATIN
     Indication: TESTICULAR SEMINOMA (PURE)
     Dosage: 42 MG, CYCLICAL
     Route: 065
  2. ETOPOSIDE (UNKNOWN) [Suspect]
     Active Substance: ETOPOSIDE
     Indication: TESTICULAR SEMINOMA (PURE)
     Dosage: 210 MG, CYCLICAL
     Route: 065
  3. PREDNISONE. [Concomitant]
     Active Substance: PREDNISONE
     Indication: TESTICULAR SEMINOMA (PURE)
     Dosage: UNK
     Route: 065
  4. BLEOMYCIN [Suspect]
     Active Substance: BLEOMYCIN SULFATE
     Indication: TESTICULAR SEMINOMA (PURE)
     Dosage: 30 MG, CYCLICAL
     Route: 065

REACTIONS (2)
  - Thrombosis [Recovering/Resolving]
  - Acute coronary syndrome [Recovering/Resolving]
